FAERS Safety Report 10021740 (Version 1)
Quarter: 2014Q1

REPORT INFORMATION
  Report Type: Spontaneous
  Country: US (occurrence: None)
  Receive Date: 20140318
  Receipt Date: 20140318
  Transmission Date: 20141002
  Serious: Yes (Other)
  Sender: FDA-Public Use
  Company Number: None

PATIENT
  Sex: 0

DRUGS (2)
  1. LEVOFLOXACIN [Suspect]
  2. LEVETIRACETAM [Suspect]

REACTIONS (2)
  - Product physical issue [None]
  - Intercepted medication error [None]
